FAERS Safety Report 23590501 (Version 1)
Quarter: 2024Q1

REPORT INFORMATION
  Report Type: Spontaneous
  Country: JP (occurrence: JP)
  Receive Date: 20240304
  Receipt Date: 20240304
  Transmission Date: 20240409
  Serious: Yes (Other)
  Sender: FDA-Public Use
  Company Number: JP-SLATERUN-2024SRLIT00021

PATIENT
  Age: 72 Year
  Sex: Female

DRUGS (1)
  1. IOPAMIDOL [Suspect]
     Active Substance: IOPAMIDOL
     Indication: Contrast media reaction
     Route: 065

REACTIONS (1)
  - Anaphylactic shock [Recovered/Resolved]
